FAERS Safety Report 14842327 (Version 2)
Quarter: 2018Q2

REPORT INFORMATION
  Report Type: Spontaneous
  Country: JP (occurrence: JP)
  Receive Date: 20180503
  Receipt Date: 20180606
  Transmission Date: 20180711
  Serious: Yes (Other)
  Sender: FDA-Public Use
  Company Number: JP-BAYER-2018-071048

PATIENT
  Age: 73 Year
  Sex: Male

DRUGS (1)
  1. XOFIGO [Suspect]
     Active Substance: RADIUM RA-223 DICHLORIDE
     Indication: HORMONE-REFRACTORY PROSTATE CANCER
     Dosage: 55KBQ/KG
     Route: 042
     Dates: start: 20180222, end: 20180517

REACTIONS (5)
  - Compression fracture [Unknown]
  - Drug effect incomplete [None]
  - Metastases to bone [None]
  - Fall [None]
  - Pain [Unknown]

NARRATIVE: CASE EVENT DATE: 20180401
